FAERS Safety Report 13129901 (Version 3)
Quarter: 2017Q1

REPORT INFORMATION
  Report Type: Spontaneous
  Country: JP (occurrence: JP)
  Receive Date: 20170119
  Receipt Date: 20170223
  Transmission Date: 20170428
  Serious: Yes (Death, Other)
  Sender: FDA-Public Use
  Company Number: PHJP2017JP001804

PATIENT
  Sex: Female

DRUGS (4)
  1. NEOSTELIN GREEN [Concomitant]
     Indication: PRODUCT USED FOR UNKNOWN INDICATION
     Dosage: UNK
     Route: 065
  2. DEXALTIN [Concomitant]
     Active Substance: DEXAMETHASONE
     Indication: PRODUCT USED FOR UNKNOWN INDICATION
     Dosage: UNK
     Route: 065
  3. AFINITOR [Suspect]
     Active Substance: EVEROLIMUS
     Indication: BREAST CANCER
     Dosage: 10 MG, QD
     Route: 048
     Dates: start: 201507
  4. EXEMESTANE. [Concomitant]
     Active Substance: EXEMESTANE
     Indication: BREAST CANCER RECURRENT
     Dosage: UNK
     Route: 065
     Dates: start: 201507

REACTIONS (13)
  - Colitis ischaemic [Unknown]
  - Hypertension [Unknown]
  - Nail disorder [Unknown]
  - Sepsis [Fatal]
  - Fatigue [Unknown]
  - Skin disorder [Unknown]
  - Oedema [Unknown]
  - Stomatitis [Unknown]
  - Ovarian rupture [Fatal]
  - Periodontitis [Unknown]
  - Constipation [Unknown]
  - Peritonitis [Unknown]
  - Epistaxis [Unknown]
